FAERS Safety Report 23410625 (Version 1)
Quarter: 2024Q1

REPORT INFORMATION
  Report Type: Spontaneous
  Country: US (occurrence: US)
  Receive Date: 20240117
  Receipt Date: 20240117
  Transmission Date: 20240410
  Serious: No
  Sender: FDA-Public Use
  Company Number: US-BAYER-2024A010315

PATIENT
  Age: 81 Year
  Sex: Female

DRUGS (4)
  1. MIRALAX [Suspect]
     Active Substance: POLYETHYLENE GLYCOL 3350
     Indication: Constipation
     Dosage: 3 DF, QD
     Route: 048
  2. MIRALAX [Suspect]
     Active Substance: POLYETHYLENE GLYCOL 3350
     Indication: Prophylaxis
  3. OFEV [Concomitant]
     Active Substance: NINTEDANIB
     Indication: Prophylaxis
     Dosage: 150 MG, QD
     Route: 048
     Dates: start: 2008
  4. PIRFENIDONE [Concomitant]
     Active Substance: PIRFENIDONE
     Indication: Prophylaxis
     Dosage: 5 MG, BID
     Route: 048
     Dates: start: 2008

REACTIONS (2)
  - Drug ineffective [Not Recovered/Not Resolved]
  - Inappropriate schedule of product administration [None]
